FAERS Safety Report 10233119 (Version 3)
Quarter: 2014Q3

REPORT INFORMATION
  Report Type: Report from Study
  Country: JP (occurrence: JP)
  Receive Date: 20140612
  Receipt Date: 20140815
  Transmission Date: 20150326
  Serious: Yes (Death, Other)
  Sender: FDA-Public Use
  Company Number: JP-OTSUKA-JP-2014-14552

PATIENT
  Age: 84 Year
  Sex: Male
  Weight: 45.4 kg

DRUGS (12)
  1. SAMSCA [Suspect]
     Active Substance: TOLVAPTAN
     Indication: OEDEMA DUE TO CARDIAC DISEASE
     Dosage: 15 MG MILLIGRAM(S), QAM
     Route: 048
     Dates: start: 20130514, end: 20130519
  2. ALDACTONE [Suspect]
     Active Substance: SPIRONOLACTONE
     Indication: CARDIAC FAILURE
     Dosage: 50 MG MILLIGRAM(S), DAILY DOSE
     Route: 048
  3. LASIX M [Suspect]
     Active Substance: FUROSEMIDE
     Indication: CARDIAC FAILURE
     Dosage: 20 MG MILLIGRAM(S), DAILY DOSE
     Route: 048
  4. LASIX M [Suspect]
     Active Substance: FUROSEMIDE
     Indication: CARDIAC FAILURE
     Dosage: 40 MG MILLIGRAM(S), DAILY DOSE
     Route: 042
  5. ANCARON [Concomitant]
     Active Substance: AMIODARONE HYDROCHLORIDE
     Indication: CARDIAC FAILURE
     Dosage: 100 MG MILLIGRAM(S), DAILY DOSE
     Route: 048
  6. THYRADIN S [Concomitant]
     Active Substance: LEVOTHYROXINE SODIUM
     Dosage: 100 MCG, DAILY DOSE
     Route: 048
  7. HANP [Concomitant]
     Active Substance: CARPERITIDE
     Indication: CARDIAC FAILURE
     Dosage: 1000 MCG, DAILY DOSE
     Route: 041
     Dates: end: 20130515
  8. BAYCARON [Concomitant]
     Indication: CARDIAC FAILURE
     Dosage: 25 MG MILLIGRAM(S), DAILY DOSE
     Route: 048
  9. WARFARIN [Concomitant]
     Active Substance: WARFARIN
     Indication: PROPHYLAXIS
     Dosage: 1 MG MILLIGRAM(S), DAILY DOSE
     Route: 048
  10. NITRODERM [Concomitant]
     Active Substance: NITROGLYCERIN
     Indication: CARDIAC FAILURE
     Dosage: 25 MG MILLIGRAM(S), DAILY DOSE
     Route: 061
  11. SALOBEL [Concomitant]
     Active Substance: ALLOPURINOL
     Dosage: 100 MG MILLIGRAM(S), DAILY DOSE
     Route: 048
  12. ARICEPT [Concomitant]
     Active Substance: DONEPEZIL HYDROCHLORIDE
     Dosage: 3 MG MILLIGRAM(S), DAILY DOSE
     Route: 048

REACTIONS (3)
  - Renal failure [Fatal]
  - Blood urea increased [Not Recovered/Not Resolved]
  - Blood creatinine increased [Recovering/Resolving]

NARRATIVE: CASE EVENT DATE: 20130517
